FAERS Safety Report 10381854 (Version 1)
Quarter: 2014Q3

REPORT INFORMATION
  Report Type: Report from Study
  Country: BR (occurrence: BR)
  Receive Date: 20140813
  Receipt Date: 20140813
  Transmission Date: 20150326
  Serious: Yes (Other)
  Sender: FDA-Public Use
  Company Number: BR-GLAXOSMITHKLINE-A1084740A

PATIENT
  Age: 83 Year
  Sex: Female
  Weight: 68 kg

DRUGS (8)
  1. SERETIDE [Suspect]
     Active Substance: FLUTICASONE FUROATE\SALMETEROL XINAFOATE
     Indication: RESPIRATORY DISORDER
     Route: 065
     Dates: start: 2007
  2. LIPITOR [Suspect]
     Active Substance: ATORVASTATIN CALCIUM
     Indication: PRODUCT USED FOR UNKNOWN INDICATION
     Route: 048
     Dates: end: 2012
  3. LEVOTHYROXINE SODIUM. [Concomitant]
     Active Substance: LEVOTHYROXINE SODIUM
     Indication: THYROID DISORDER
     Dosage: 1TAB PER DAY
     Route: 048
     Dates: start: 2012
  4. LEUCOGEN [Concomitant]
     Active Substance: LEUCOGEN
     Dates: start: 201403
  5. DIAMICRON [Concomitant]
     Active Substance: GLICLAZIDE
     Dates: start: 2011
  6. VALSARTAN. [Concomitant]
     Active Substance: VALSARTAN
     Indication: BLOOD PRESSURE
     Dates: start: 201401
  7. BROMAZEPAM [Concomitant]
     Active Substance: BROMAZEPAM
     Indication: SEDATION
  8. DEPURA [Concomitant]
     Active Substance: CHOLECALCIFEROL
     Indication: VITAMIN D
     Dates: start: 2013

REACTIONS (8)
  - Off label use [Unknown]
  - Knee arthroplasty [Unknown]
  - Hypersensitivity [Recovering/Resolving]
  - Dyspnoea [Recovering/Resolving]
  - Increased upper airway secretion [Recovering/Resolving]
  - Drug-induced liver injury [Recovered/Resolved]
  - Dysphonia [Recovering/Resolving]
  - Spinal operation [Unknown]

NARRATIVE: CASE EVENT DATE: 2007
